FAERS Safety Report 21422719 (Version 1)
Quarter: 2022Q4

REPORT INFORMATION
  Report Type: Spontaneous
  Country: US (occurrence: US)
  Receive Date: 20221007
  Receipt Date: 20221007
  Transmission Date: 20230113
  Serious: No
  Sender: FDA-Public Use
  Company Number: US-PFIZER INC-PV202200077238

PATIENT
  Age: 29 Year
  Sex: Female

DRUGS (7)
  1. EUCRISA [Suspect]
     Active Substance: CRISABOROLE
     Indication: Dermatitis atopic
     Dosage: 100 MG, DAILY
  2. DUPIXENT [Suspect]
     Active Substance: DUPILUMAB
     Dosage: 100 MG, DAILY
  3. PREDNISONE [Suspect]
     Active Substance: PREDNISONE
     Dosage: UNK
     Route: 048
  4. CLOBETASOL [Suspect]
     Active Substance: CLOBETASOL
     Indication: Scar
     Dosage: 0.05 DF
  5. CLOBETASOL [Suspect]
     Active Substance: CLOBETASOL
     Indication: Eczema
     Dosage: UNK, 1X/DAY
     Route: 048
  6. BETAMETHASONE [Suspect]
     Active Substance: BETAMETHASONE
     Dosage: UNK
  7. CIBINQO [Concomitant]
     Active Substance: ABROCITINIB
     Dosage: 100 MG, DAILY (ONCE A DAY)
     Route: 048

REACTIONS (1)
  - Drug ineffective [Unknown]
